FAERS Safety Report 14564827 (Version 1)
Quarter: 2018Q1

REPORT INFORMATION
  Report Type: Spontaneous
  Country: AU (occurrence: AU)
  Receive Date: 20180223
  Receipt Date: 20180223
  Transmission Date: 20180509
  Serious: Yes (Hospitalization)
  Sender: FDA-Public Use
  Company Number: AU-BAXTER-2018BAX001510

PATIENT
  Age: 69 Year
  Sex: Female

DRUGS (14)
  1. WATER FOR INJECTION [Suspect]
     Active Substance: WATER
     Indication: FUNCTIONAL GASTROINTESTINAL DISORDER
     Route: 042
  2. BUPRENORPHINE. [Concomitant]
     Active Substance: BUPRENORPHINE
     Indication: PRODUCT USED FOR UNKNOWN INDICATION
     Route: 048
  3. SYNTHAMIN [Suspect]
     Active Substance: AMINO ACIDS
     Indication: FUNCTIONAL GASTROINTESTINAL DISORDER
     Route: 042
  4. CERNEVIT [Suspect]
     Active Substance: VITAMINS
     Indication: FUNCTIONAL GASTROINTESTINAL DISORDER
     Route: 042
  5. SMOFLIPID [Suspect]
     Active Substance: FISH OIL\MEDIUM-CHAIN TRIGLYCERIDES\OLIVE OIL\SOYBEAN OIL
     Indication: FUNCTIONAL GASTROINTESTINAL DISORDER
     Route: 042
  6. VITAMIN K 10MG/ML (PHYTOMENADIONE) [Suspect]
     Active Substance: PHYTONADIONE
     Indication: FUNCTIONAL GASTROINTESTINAL DISORDER
     Route: 042
  7. PARACETAMOL [Concomitant]
     Active Substance: ACETAMINOPHEN
     Indication: PRODUCT USED FOR UNKNOWN INDICATION
     Route: 048
  8. GLUCOSE 70% [Suspect]
     Active Substance: DEXTROSE
     Indication: FUNCTIONAL GASTROINTESTINAL DISORDER
     Route: 042
  9. SODIUM CHLORIDE 4MMOL/ML [Suspect]
     Active Substance: SODIUM CHLORIDE
     Indication: FUNCTIONAL GASTROINTESTINAL DISORDER
     Route: 042
  10. ADULT TRACE ELEMENTS [Suspect]
     Active Substance: MINERALS
     Indication: FUNCTIONAL GASTROINTESTINAL DISORDER
     Route: 042
  11. WATER FOR RECONSTITUTION [Suspect]
     Active Substance: WATER
     Indication: FUNCTIONAL GASTROINTESTINAL DISORDER
     Route: 042
  12. LANSOPRAZOLE. [Concomitant]
     Active Substance: LANSOPRAZOLE
     Indication: PRODUCT USED FOR UNKNOWN INDICATION
     Route: 048
  13. LOPERAMIDE [Concomitant]
     Active Substance: LOPERAMIDE
     Indication: PRODUCT USED FOR UNKNOWN INDICATION
     Route: 048
  14. CALCIUM GLUCONATE 0.15MMOL/ML [Suspect]
     Active Substance: CALCIUM GLUCONATE
     Indication: FUNCTIONAL GASTROINTESTINAL DISORDER
     Route: 042

REACTIONS (5)
  - Fistula [Recovered/Resolved]
  - Pain [Recovered/Resolved]
  - Stoma site discharge [None]
  - Burning sensation [Unknown]
  - Skin abrasion [Recovered/Resolved]

NARRATIVE: CASE EVENT DATE: 20180109
